FAERS Safety Report 23764227 (Version 2)
Quarter: 2024Q2

REPORT INFORMATION
  Report Type: Report from Study
  Country: US (occurrence: US)
  Receive Date: 20240420
  Receipt Date: 20240429
  Transmission Date: 20240716
  Serious: Yes (Other)
  Sender: FDA-Public Use
  Company Number: US-ABBVIE-5417527

PATIENT
  Age: 64 Year
  Sex: Male

DRUGS (4)
  1. RINVOQ [Suspect]
     Active Substance: UPADACITINIB
     Indication: Dermatitis atopic
     Route: 048
  2. RINVOQ [Suspect]
     Active Substance: UPADACITINIB
     Indication: Dermatitis atopic
     Route: 048
  3. RINVOQ [Suspect]
     Active Substance: UPADACITINIB
     Indication: Dermatitis atopic
     Route: 048
     Dates: start: 20220603, end: 20240418
  4. DOXYCYCLINE [Concomitant]
     Active Substance: DOXYCYCLINE
     Indication: Acne
     Route: 065
     Dates: start: 20230907

REACTIONS (4)
  - Dental implantation [Recovering/Resolving]
  - Acne [Not Recovered/Not Resolved]
  - Therapeutic product effect incomplete [Unknown]
  - Tooth extraction [Unknown]

NARRATIVE: CASE EVENT DATE: 20221226
